FAERS Safety Report 7873024 (Version 2)
Quarter: 2013Q1

REPORT INFORMATION
  Report Type: Spontaneous
  Country: GB (occurrence: GB)
  Receive Date: 20110328
  Receipt Date: 20130208
  Transmission Date: 20140127
  Serious: Yes (Other)
  Sender: FDA-Public Use
  Company Number: GB-RANBAXY-2011R1-42902

PATIENT
  Age: 26 Year
  Sex: Female

DRUGS (5)
  1. OXCARBAZEPINE [Suspect]
     Indication: EPILEPSY
     Dosage: UNK
     Route: 065
  2. LACOSAMIDE [Interacting]
     Indication: EPILEPSY
     Dosage: 200 MG/DAY
     Route: 065
  3. LACOSAMIDE [Interacting]
     Dosage: 300 MG/DAY
     Route: 065
  4. LEVITIRACETAM [Concomitant]
     Indication: EPILEPSY
     Dosage: 2500 MG DAILY
     Route: 065
  5. CLOBAZAM [Concomitant]
     Indication: EPILEPSY
     Dosage: UNK
     Route: 065

REACTIONS (4)
  - Diplopia [Recovering/Resolving]
  - Neurotoxicity [Recovering/Resolving]
  - Drug interaction [Recovering/Resolving]
  - Ataxia [Recovering/Resolving]
